FAERS Safety Report 22886675 (Version 5)
Quarter: 2023Q4

REPORT INFORMATION
  Report Type: Report from Study
  Country: KR (occurrence: None)
  Receive Date: 20230831
  Receipt Date: 20231031
  Transmission Date: 20240109
  Serious: Yes (Hospitalization)
  Sender: FDA-Public Use
  Company Number: KR-ROCHE-3412878

PATIENT
  Age: 57 Year
  Sex: Female

DRUGS (19)
  1. ATEZOLIZUMAB [Suspect]
     Active Substance: ATEZOLIZUMAB
     Indication: Colorectal cancer
     Dosage: ON 12/JUN/2023, 03/JUL/2023, 24/JUL/2023, 13/SEP/2023, THE PATIENT RECEIVED THE MOST RECENT DOSE OF
     Route: 041
     Dates: start: 20230522
  2. ZANZALINTINIB [Suspect]
     Active Substance: ZANZALINTINIB
     Indication: Colorectal cancer
     Route: 048
     Dates: start: 20230522
  3. CELEBREX [Concomitant]
     Active Substance: CELECOXIB
     Dates: start: 20230504
  4. HEPARIN [Concomitant]
     Active Substance: HEPARIN SODIUM
     Dates: start: 20230814
  5. OXYCODONE HYDROCHLORIDE [Concomitant]
     Active Substance: OXYCODONE HYDROCHLORIDE
     Dates: start: 20220908, end: 20230823
  6. LIPILOU [Concomitant]
     Dates: start: 20180101
  7. MORPHINE SULFATE [Concomitant]
     Active Substance: MORPHINE SULFATE
     Dates: start: 20230814, end: 20230814
  8. MULEX [Concomitant]
     Dates: start: 20230504
  9. NEUROTIN (SOUTH KOREA) [Concomitant]
     Dates: start: 20230511
  10. NALOXONE HYDROCHLORIDE\OXYCODONE HYDROCHLORIDE [Concomitant]
     Active Substance: NALOXONE HYDROCHLORIDE\OXYCODONE HYDROCHLORIDE
     Dates: start: 20230306
  11. URUSA [Concomitant]
     Active Substance: URSODIOL
     Dates: start: 20230724, end: 20230730
  12. XYZAL [Concomitant]
     Active Substance: LEVOCETIRIZINE DIHYDROCHLORIDE
     Dates: start: 20230605
  13. DEXAMETHASONE SODIUM PHOSPHATE [Concomitant]
     Active Substance: DEXAMETHASONE SODIUM PHOSPHATE
     Dates: start: 20230814, end: 20230814
  14. MEPIVACAINE HYDROCHLORIDE [Concomitant]
     Active Substance: MEPIVACAINE HYDROCHLORIDE
     Dates: start: 20230814, end: 20230814
  15. PELUBI [Concomitant]
     Dates: start: 20230814, end: 20230821
  16. HIRAX [Concomitant]
     Dates: start: 20230814, end: 20230814
  17. FENTANYL [Concomitant]
     Active Substance: FENTANYL\FENTANYL CITRATE
     Indication: Cancer pain
  18. MORPHINE SULFATE [Concomitant]
     Active Substance: MORPHINE SULFATE
     Indication: Cancer pain
  19. SULFAMETHOXAZOLE\TRIMETHOPRIM [Concomitant]
     Active Substance: SULFAMETHOXAZOLE\TRIMETHOPRIM
     Dates: start: 20230822, end: 20230901

REACTIONS (2)
  - Hepatitis [Not Recovered/Not Resolved]
  - Cancer pain [Recovered/Resolved]

NARRATIVE: CASE EVENT DATE: 20230821
